FAERS Safety Report 20096343 (Version 1)
Quarter: 2021Q4

REPORT INFORMATION
  Report Type: Spontaneous
  Country: US (occurrence: None)
  Receive Date: 20211119
  Receipt Date: 20211119
  Transmission Date: 20220303
  Serious: Yes (Other)
  Sender: FDA-Public Use
  Company Number: None

PATIENT
  Age: 27 Year
  Sex: Female
  Weight: 56.25 kg

DRUGS (1)
  1. ETHINYL ESTRADIOL\ETHYNODIOL [Suspect]
     Active Substance: ETHINYL ESTRADIOL\ETHYNODIOL
     Indication: Menstruation irregular
     Dosage: OTHER STRENGTH : USP;?
     Route: 048
     Dates: start: 20211115, end: 20211119

REACTIONS (2)
  - Vomiting projectile [None]
  - Headache [None]

NARRATIVE: CASE EVENT DATE: 20211118
